FAERS Safety Report 7941691-8 (Version None)
Quarter: 2011Q4

REPORT INFORMATION
  Report Type: 
  Country: None (occurrence: None)
  Receive Date: 20111128
  Receipt Date: 20111128
  Transmission Date: 20120403
  Serious: Yes (Death, Life-Threatening, Hospitalization, Disabling, Congenital Anomaly, Other)
  Sender: FDA-Public Use
  Company Number: None

PATIENT
  Age: 33 Year
  Sex: Female
  Weight: 59 kg

DRUGS (1)
  1. PAROXETINE HCL [Suspect]

REACTIONS (16)
  - DRUG WITHDRAWAL SYNDROME [None]
  - DEPRESSION [None]
  - FEMALE ORGASMIC DISORDER [None]
  - FAMILY STRESS [None]
  - EMOTIONAL DISORDER [None]
  - ANHEDONIA [None]
  - INSOMNIA [None]
  - LOSS OF EMPLOYMENT [None]
  - PARTNER STRESS [None]
  - DIARRHOEA [None]
  - VOMITING [None]
  - PARAESTHESIA [None]
  - SEXUAL DYSFUNCTION [None]
  - ANXIETY [None]
  - PALPITATIONS [None]
  - SUICIDAL IDEATION [None]
